FAERS Safety Report 15842633 (Version 1)
Quarter: 2018Q4

REPORT INFORMATION
  Report Type: Spontaneous
  Country: US (occurrence: US)
  Receive Date: 20181226
  Receipt Date: 20181226
  Transmission Date: 20190205
  Serious: Yes (Hospitalization)
  Sender: FDA-Public Use
  Company Number: None

PATIENT
  Age: 59 Year
  Sex: Female
  Weight: 56.7 kg

DRUGS (1)
  1. OSIMERTINIB. [Suspect]
     Active Substance: OSIMERTINIB
     Dosage: ?          OTHER FREQUENCY:ONCE DAILY;?
     Route: 048

REACTIONS (2)
  - Pulmonary alveolar haemorrhage [None]
  - Pneumonia [None]

NARRATIVE: CASE EVENT DATE: 20181118
